FAERS Safety Report 8417435-2 (Version None)
Quarter: 2012Q2

REPORT INFORMATION
  Report Type: 
  Country: None (occurrence: None)
  Receive Date: 20120606
  Receipt Date: 20120605
  Transmission Date: 20120825
  Serious: Yes (Hospitalization)
  Sender: FDA-Public Use
  Company Number: CA-GILEAD-2012-0054611

PATIENT
  Sex: Female

DRUGS (1)
  1. CAYSTON [Suspect]
     Indication: CYSTIC FIBROSIS
     Dosage: UNK
     Route: 055
     Dates: start: 20110501

REACTIONS (1)
  - BRONCHITIS [None]
